FAERS Safety Report 6068638-6 (Version None)
Quarter: 2009Q1

REPORT INFORMATION
  Report Type: 
  Country: None (occurrence: None)
  Receive Date: 20090203
  Receipt Date: 20090121
  Transmission Date: 20090719
  Serious: Yes (Hospitalization)
  Sender: FDA-Public Use
  Company Number: WAES 0812USA04656

PATIENT
  Age: 52 Year
  Sex: Male

DRUGS (5)
  1. DECADRON [Suspect]
     Indication: NON-SMALL CELL LUNG CANCER
     Dosage: 25 MG/BID, PO
     Route: 048
     Dates: start: 20081126
  2. ALIMTA [Suspect]
     Indication: NON-SMALL CELL LUNG CANCER
     Dosage: 500 MG/M[2], IV
     Route: 042
     Dates: start: 20081127
  3. FOLIC ACID [Suspect]
     Indication: NON-SMALL CELL LUNG CANCER
     Dosage: 400 MICROGM/DAILY, PO
     Route: 048
     Dates: start: 20081120
  4. ACETAMINOPHEN AND CODEINE PHOSPHATE [Concomitant]
  5. CYANOCOBALAMIN [Concomitant]

REACTIONS (4)
  - CYANOSIS [None]
  - DEHYDRATION [None]
  - PAIN [None]
  - PLEURAL EFFUSION [None]
